FAERS Safety Report 8815445 (Version 1)
Quarter: 2012Q4

REPORT INFORMATION
  Report Type: 
  Country: IT (occurrence: IT)
  Receive Date: 20120928
  Receipt Date: 20120928
  Transmission Date: 20130627
  Serious: Yes (Hospitalization)
  Sender: FDA-Public Use
  Company Number: IT-TEVA-359590ISR

PATIENT
  Age: 67 Year
  Sex: Female

DRUGS (8)
  1. GEMCITABINE [Suspect]
     Indication: MALIGNANT HEPATOBILIARY NEOPLASM
     Route: 042
     Dates: start: 20111223, end: 20120313
  2. ZESTRIL [Concomitant]
     Route: 048
     Dates: start: 20120314, end: 20120925
  3. ZOFRAN [Concomitant]
     Route: 048
     Dates: start: 20120314, end: 20120325
  4. LERCADIP [Concomitant]
     Route: 048
  5. MYELOSTIM [Concomitant]
     Dates: start: 20120317, end: 20120317
  6. VANDETANIB [Concomitant]
     Dates: start: 20111223
  7. METFORMINA [Concomitant]
  8. OMEPRAZOLO [Concomitant]
     Route: 048

REACTIONS (2)
  - Ectropion [Recovering/Resolving]
  - Skin reaction [Recovering/Resolving]
